FAERS Safety Report 24121148 (Version 1)
Quarter: 2024Q3

REPORT INFORMATION
  Report Type: Report from Study
  Country: ES (occurrence: ES)
  Receive Date: 20240722
  Receipt Date: 20240722
  Transmission Date: 20241017
  Serious: Yes (Hospitalization, Other)
  Sender: IOVANCE BIOTHERAPEUTICS
  Company Number: ES-Clinigen Group PLC/ Clinigen Healthcare Ltd-ES-CLGN-20-00273

PATIENT
  Age: 46 Year
  Sex: Male

DRUGS (5)
  1. ALDESLEUKIN [Suspect]
     Active Substance: ALDESLEUKIN
     Indication: Neoplasm
     Dosage: UNK
     Route: 042
     Dates: start: 20200309, end: 20200310
  2. LIFILEUCEL [Suspect]
     Active Substance: LIFILEUCEL
     Indication: Neoplasm
     Dosage: UNK UNK
     Route: 042
     Dates: start: 20200309, end: 20200309
  3. CYCLOPHOSPHAMIDE [Suspect]
     Active Substance: CYCLOPHOSPHAMIDE
     Indication: Neoplasm
     Dosage: 60 MILLIGRAM/KILOGRAM
     Route: 042
     Dates: start: 20200302, end: 20200303
  4. FLUDARABINE [Suspect]
     Active Substance: FLUDARABINE PHOSPHATE
     Indication: Neoplasm
     Dosage: 25 MILLIGRAM/SQ. METER
     Route: 042
     Dates: start: 20200304, end: 20200305
  5. PEMBROLIZUMAB [Suspect]
     Active Substance: PEMBROLIZUMAB
     Indication: Neoplasm
     Dosage: 200 MILLIGRAM
     Route: 042
     Dates: start: 20200226, end: 20200226

REACTIONS (2)
  - Cytokine release syndrome [Recovered/Resolved]
  - Septic shock [Unknown]

NARRATIVE: CASE EVENT DATE: 20200311
